FAERS Safety Report 9958006 (Version 1)
Quarter: 2014Q1

REPORT INFORMATION
  Report Type: Report from Study
  Country: US (occurrence: US)
  Receive Date: 20140304
  Receipt Date: 20140304
  Transmission Date: 20141002
  Serious: No
  Sender: FDA-Public Use
  Company Number: US-ABBVIE-13P-163-1093257-00

PATIENT
  Age: 29 Year
  Sex: Female

DRUGS (10)
  1. HUMIRA [Suspect]
     Indication: RHEUMATOID ARTHRITIS
     Dates: start: 20130425
  2. METHOTREXATE [Concomitant]
     Indication: RHEUMATOID ARTHRITIS
  3. PREDNISONE [Concomitant]
     Indication: RHEUMATOID ARTHRITIS
     Dosage: 5MG DAILY
  4. VALTREX [Concomitant]
     Indication: GENITAL HERPES
     Dosage: 500MG DAILY
  5. FOLIC ACID [Concomitant]
     Indication: PRODUCT USED FOR UNKNOWN INDICATION
     Dosage: 1MG DAILY
  6. BENTYL [Concomitant]
     Indication: IRRITABLE BOWEL SYNDROME
  7. ZONEGRAN [Concomitant]
     Indication: MIGRAINE
     Dosage: 100MG DAILY
  8. TOPAMAX [Concomitant]
     Indication: MIGRAINE
     Dosage: 50MG DAILY
  9. AMITIZA [Concomitant]
     Indication: IRRITABLE BOWEL SYNDROME
     Dosage: 8MCG DAILY
  10. IBUPROFEN [Concomitant]
     Indication: PRODUCT USED FOR UNKNOWN INDICATION

REACTIONS (4)
  - Facial pain [Not Recovered/Not Resolved]
  - Infection [Not Recovered/Not Resolved]
  - Swelling face [Recovering/Resolving]
  - Nasal ulcer [Unknown]
